FAERS Safety Report 5389488-X (Version None)
Quarter: 2007Q3

REPORT INFORMATION
  Report Type: 
  Country: None (occurrence: None)
  Receive Date: 20070717
  Receipt Date: 20070711
  Transmission Date: 20080115
  Serious: Yes (Hospitalization)
  Sender: FDA-Public Use
  Company Number: US-ABBOTT-07P-163-0374308-00

PATIENT
  Age: 47 Year
  Sex: Male

DRUGS (3)
  1. LOPINAVIR/RITONAVIR [Suspect]
     Indication: HIV INFECTION
     Dosage: NOT REPORTED
  2. EFAVIRENZ [Suspect]
     Indication: HIV INFECTION
     Dosage: NOT REPORTED
  3. LAMIVUDINE + ZIDOVUDINE [Suspect]
     Indication: HIV INFECTION
     Dosage: NOT REPORTED

REACTIONS (2)
  - BASEDOW'S DISEASE [None]
  - HYPERTHYROIDISM [None]
